FAERS Safety Report 12504200 (Version 11)
Quarter: 2020Q1

REPORT INFORMATION
  Report Type: Report from Study
  Country: US (occurrence: US)
  Receive Date: 20160628
  Receipt Date: 20200124
  Transmission Date: 20200409
  Serious: Yes (Disabling, Other)
  Sender: FDA-Public Use
  Company Number: US-SA-2016SA116829

PATIENT
  Age: 58 Year
  Sex: Female
  Weight: 87.09 kg

DRUGS (4)
  1. KEFLEX [Concomitant]
     Active Substance: CEPHALEXIN
     Indication: PROPHYLAXIS
  2. ALEMTUZUMAB [Suspect]
     Active Substance: ALEMTUZUMAB
     Dosage: 12 MG,QD
     Route: 041
     Dates: start: 20160606, end: 20160607
  3. ACICLOVIR [Concomitant]
     Active Substance: ACYCLOVIR
     Indication: ANTIVIRAL PROPHYLAXIS
     Dosage: UNK UNK, UNK
     Route: 065
  4. ALEMTUZUMAB [Suspect]
     Active Substance: ALEMTUZUMAB
     Indication: MULTIPLE SCLEROSIS
     Dosage: 12 MG,QD
     Route: 041
     Dates: start: 20160601, end: 20160603

REACTIONS (43)
  - Gait disturbance [Unknown]
  - Upper respiratory tract infection [Recovered/Resolved]
  - Klebsiella test positive [Unknown]
  - Poor venous access [Not Recovered/Not Resolved]
  - Carpal tunnel syndrome [Unknown]
  - Balance disorder [Unknown]
  - Hypoaesthesia [Unknown]
  - Muscular weakness [Unknown]
  - Muscle spasms [Unknown]
  - Throat irritation [Unknown]
  - Haematocrit abnormal [Not Recovered/Not Resolved]
  - Vitamin D deficiency [Unknown]
  - Knee operation [Unknown]
  - Seizure [Unknown]
  - Nervousness [Unknown]
  - Arthralgia [Not Recovered/Not Resolved]
  - Blood creatinine increased [Not Recovered/Not Resolved]
  - White blood cells urine positive [Not Recovered/Not Resolved]
  - Nitrite urine present [Unknown]
  - Aphasia [Not Recovered/Not Resolved]
  - Ocular discomfort [Not Recovered/Not Resolved]
  - Motor dysfunction [Unknown]
  - Vision blurred [Unknown]
  - Choking [Unknown]
  - Hypothyroidism [Unknown]
  - Urine leukocyte esterase positive [Unknown]
  - Band sensation [Recovering/Resolving]
  - Tenoplasty [Unknown]
  - Autoimmune disorder [Unknown]
  - Wheezing [Recovered/Resolved]
  - Fatigue [Not Recovered/Not Resolved]
  - Nasopharyngitis [Not Recovered/Not Resolved]
  - Blood glucose increased [Not Recovered/Not Resolved]
  - Urinary casts present [Unknown]
  - Blood urine present [Not Recovered/Not Resolved]
  - Vomiting [Recovered/Resolved]
  - Protein urine present [Unknown]
  - Memory impairment [Unknown]
  - Condition aggravated [Unknown]
  - Urinary tract infection [Not Recovered/Not Resolved]
  - Haemoglobin decreased [Not Recovered/Not Resolved]
  - Paraesthesia [Unknown]
  - Fall [Unknown]

NARRATIVE: CASE EVENT DATE: 2016
